FAERS Safety Report 21684064 (Version 1)
Quarter: 2022Q4

REPORT INFORMATION
  Report Type: Report from Study
  Country: US (occurrence: US)
  Receive Date: 20221205
  Receipt Date: 20221205
  Transmission Date: 20230113
  Serious: No
  Sender: FDA-Public Use
  Company Number: US-ABBVIE-4189221

PATIENT
  Sex: Female

DRUGS (2)
  1. HUMIRA [Suspect]
     Active Substance: ADALIMUMAB
     Indication: Hidradenitis
     Dosage: FORM STRENGTH: 80 MG?ONE IN ONCE DOSE?DAY 0
     Route: 058
     Dates: start: 20220608, end: 20220608
  2. HUMIRA [Suspect]
     Active Substance: ADALIMUMAB
     Dosage: FIRST ADMIN DATE : 2022?FORM STRENGTH: 80 MG?DAY 29
     Route: 058

REACTIONS (1)
  - Drug ineffective [Unknown]
